FAERS Safety Report 11935337 (Version 1)
Quarter: 2016Q1

REPORT INFORMATION
  Report Type: Spontaneous
  Country: US (occurrence: US)
  Receive Date: 20160121
  Receipt Date: 20160121
  Transmission Date: 20160526
  Serious: No
  Sender: FDA-Public Use
  Company Number: US-AKRON, INC.-1046711

PATIENT
  Age: 81 Year
  Sex: Male
  Weight: 68.18 kg

DRUGS (1)
  1. CLOBETASOL PROPIONATE TOPICAL SOLUTION [Suspect]
     Active Substance: CLOBETASOL PROPIONATE
     Indication: DRY SKIN
     Route: 061

REACTIONS (4)
  - Pain [Not Recovered/Not Resolved]
  - Application site pustules [Not Recovered/Not Resolved]
  - Application site erythema [Not Recovered/Not Resolved]
  - Application site swelling [Not Recovered/Not Resolved]
